FAERS Safety Report 14271998 (Version 2)
Quarter: 2018Q1

REPORT INFORMATION
  Report Type: Report from Study
  Country: US (occurrence: US)
  Receive Date: 20171211
  Receipt Date: 20180104
  Transmission Date: 20180508
  Serious: Yes (Hospitalization)
  Sender: FDA-Public Use
  Company Number: US-ACTELION-A-NJ2017-161260

PATIENT
  Age: 26 Year
  Sex: Female

DRUGS (14)
  1. DELTASONE [Concomitant]
     Active Substance: PREDNISONE
  2. METHOTREXATE. [Concomitant]
     Active Substance: METHOTREXATE
  3. OPSUMIT [Suspect]
     Active Substance: MACITENTAN
     Indication: PULMONARY ARTERIAL HYPERTENSION
     Dosage: 10 MG, QD
     Route: 048
     Dates: start: 20170127
  4. LEXAPRO [Concomitant]
     Active Substance: ESCITALOPRAM OXALATE
  5. PRILOSEC [Concomitant]
     Active Substance: OMEPRAZOLE MAGNESIUM
  6. K-TAB [Concomitant]
     Active Substance: POTASSIUM CHLORIDE
  7. VENTOLIN HFA [Concomitant]
     Active Substance: ALBUTEROL SULFATE
  8. ALBUTEROL. [Concomitant]
     Active Substance: ALBUTEROL
  9. FOLIC ACID. [Concomitant]
     Active Substance: FOLIC ACID
  10. BENZONATATE. [Concomitant]
     Active Substance: BENZONATATE
  11. REMODULIN [Concomitant]
     Active Substance: TREPROSTINIL
  12. HYDROXYCHLOROQUINE [Concomitant]
     Active Substance: HYDROXYCHLOROQUINE
  13. BUMEX [Concomitant]
     Active Substance: BUMETANIDE
  14. NORCO [Concomitant]
     Active Substance: ACETAMINOPHEN\HYDROCODONE BITARTRATE

REACTIONS (13)
  - Nasal congestion [Unknown]
  - Malaise [Unknown]
  - Pain [Unknown]
  - Dyspnoea [Unknown]
  - Cough [Unknown]
  - Pneumonia [Unknown]
  - Chest pain [Unknown]
  - Upper respiratory tract infection [Unknown]
  - Oropharyngeal pain [Unknown]
  - Rhinorrhoea [Unknown]
  - Sinus tachycardia [Recovered/Resolved]
  - Pleurisy [Unknown]
  - Anxiety [Unknown]

NARRATIVE: CASE EVENT DATE: 20170928
